FAERS Safety Report 20935472 (Version 1)
Quarter: 2022Q2

REPORT INFORMATION
  Report Type: Spontaneous
  Country: FR (occurrence: FR)
  Receive Date: 20220609
  Receipt Date: 20220609
  Transmission Date: 20220721
  Serious: Yes (Hospitalization, Other)
  Sender: FDA-Public Use
  Company Number: FR-AFSSAPS-RN20221392

PATIENT
  Age: 71 Year
  Sex: Male

DRUGS (13)
  1. ALLOPURINOL [Suspect]
     Active Substance: ALLOPURINOL
     Indication: Gout
     Dosage: UNK
     Route: 048
  2. MIRTAZAPINE [Suspect]
     Active Substance: MIRTAZAPINE
     Indication: Depression
     Dosage: 15 MILLIGRAM, 2 LE SOIR
     Route: 048
  3. VENLAFAXINE [Suspect]
     Active Substance: VENLAFAXINE HYDROCHLORIDE
     Indication: Depression
     Dosage: 150 MILLIGRAM, ONCE A DAY (1X/J )
     Route: 048
  4. INDAPAMIDE\PERINDOPRIL [Suspect]
     Active Substance: INDAPAMIDE\PERINDOPRIL
     Indication: Hypertension
     Dosage: UNK UNK, ONCE A DAY (1X/J)
     Route: 048
  5. CHOLESTYRAMINE [Suspect]
     Active Substance: CHOLESTYRAMINE
     Indication: Hypertriglyceridaemia
     Dosage: 4 GRAM, 3 TIMES A DAY (3X/J)
     Route: 048
  6. COLCHICINE [Suspect]
     Active Substance: COLCHICINE
     Indication: Gout
     Dosage: UNK UNK, ONCE A DAY (1X/J)
     Route: 048
  7. EZETIMIBE\SIMVASTATIN [Suspect]
     Active Substance: EZETIMIBE\SIMVASTATIN
     Indication: Hypertriglyceridaemia
     Dosage: 10 MILLIGRAM, ONCE A DAY (1X/J)
     Route: 048
  8. MANIDIPINE [Suspect]
     Active Substance: MANIDIPINE
     Indication: Hypertension
     Dosage: 20 MILLIGRAM, ONCE A DAY ( 1X/J)
     Route: 048
  9. NOVORAPID [Suspect]
     Active Substance: INSULIN ASPART
     Indication: Type 2 diabetes mellitus
     Dosage: UNK
     Route: 058
  10. SOLIFENACIN [Suspect]
     Active Substance: SOLIFENACIN
     Indication: Prostatomegaly
     Dosage: 5 MILLIGRAM, ONCE A DAY (1X/J)
     Route: 048
  11. TOUJEO [Suspect]
     Active Substance: INSULIN GLARGINE
     Indication: Type 2 diabetes mellitus
     Dosage: UNK
     Route: 058
  12. PYGEUM [Suspect]
     Active Substance: PYGEUM
     Indication: Prostatomegaly
     Dosage: 50 MILLIGRAM, TWO TIMES A DAY (2X/J)
     Route: 048
  13. MACROGOL LAURIL ETHERS [Concomitant]
     Indication: Constipation
     Dosage: UNK, AU BESOIN
     Route: 048

REACTIONS (2)
  - Thrombocytopenia [Not Recovered/Not Resolved]
  - Anaemia [Not Recovered/Not Resolved]

NARRATIVE: CASE EVENT DATE: 20220429
